FAERS Safety Report 7608962-6 (Version None)
Quarter: 2011Q3

REPORT INFORMATION
  Report Type: 
  Country: None (occurrence: None)
  Receive Date: 20110714
  Receipt Date: 20110601
  Transmission Date: 20111222
  Serious: Yes (Hospitalization)
  Sender: FDA-Public Use
  Company Number: IT-GLAXOSMITHKLINE-B0724887A

PATIENT
  Sex: Female

DRUGS (6)
  1. PROPAFENONE HCL [Suspect]
     Indication: VENTRICULAR ARRHYTHMIA
     Dosage: 900MG PER DAY
     Route: 048
     Dates: start: 20110426, end: 20110430
  2. CANDESARTAN CILEXETIL AND HYDROCHLOROTHIAZIDE [Concomitant]
  3. ALLOPURINOL [Concomitant]
  4. ATENOLOL [Concomitant]
     Dosage: 100MG PER DAY
  5. LEVOTHYROXINE SODIUM [Concomitant]
     Dosage: 50MCG PER DAY
  6. ASPIRIN [Concomitant]

REACTIONS (1)
  - PALPITATIONS [None]
